FAERS Safety Report 7960053-0 (Version None)
Quarter: 2011Q4

REPORT INFORMATION
  Report Type: 
  Country: None (occurrence: None)
  Receive Date: 20111206
  Receipt Date: 20111125
  Transmission Date: 20120403
  Serious: Yes (Life-Threatening, Hospitalization, Other)
  Sender: FDA-Public Use
  Company Number: PHHY2011FR103846

PATIENT
  Age: 75 Year
  Sex: Female

DRUGS (1)
  1. DEFERASIROX [Suspect]
     Indication: MYELODYSPLASTIC SYNDROME

REACTIONS (18)
  - RASH [None]
  - APALLIC SYNDROME [None]
  - FACE OEDEMA [None]
  - PYREXIA [None]
  - LEUKOCYTOSIS [None]
  - CARDIAC ARREST [None]
  - HYPOCALCAEMIA [None]
  - DISSEMINATED INTRAVASCULAR COAGULATION [None]
  - SERUM FERRITIN INCREASED [None]
  - THROMBOCYTOPENIA [None]
  - DRUG RASH WITH EOSINOPHILIA AND SYSTEMIC SYMPTOMS [None]
  - SKIN LESION [None]
  - SKIN NECROSIS [None]
  - LYMPHOCYTE MORPHOLOGY ABNORMAL [None]
  - LYMPHOCYTIC INFILTRATION [None]
  - THROMBOSIS [None]
  - PROTHROMBIN TIME SHORTENED [None]
  - HEPATIC ENZYME INCREASED [None]
